FAERS Safety Report 5971508-2 (Version None)
Quarter: 2008Q4

REPORT INFORMATION
  Report Type: 
  Country: None (occurrence: None)
  Receive Date: 20081201
  Receipt Date: 20081119
  Transmission Date: 20090506
  Serious: Yes (Other)
  Sender: FDA-Public Use
  Company Number: US-CELGENEUS-163-21880-07020740

PATIENT
  Sex: Female
  Weight: 76.8 kg

DRUGS (2)
  1. REVLIMID [Suspect]
     Route: 048
     Dates: start: 20060207
  2. DEXAMETHASONE [Suspect]
     Route: 048
     Dates: start: 20060207

REACTIONS (3)
  - BACK PAIN [None]
  - HYPERGLYCAEMIA [None]
  - HYPONATRAEMIA [None]
